FAERS Safety Report 10044846 (Version 1)
Quarter: 2014Q1

REPORT INFORMATION
  Report Type: Spontaneous
  Country: US (occurrence: None)
  Receive Date: 20140318
  Receipt Date: 20140318
  Transmission Date: 20141002
  Serious: Yes (Hospitalization)
  Sender: FDA-Public Use
  Company Number: DL2014-0238

PATIENT
  Age: 23 Year
  Sex: Female

DRUGS (3)
  1. MIFEPRISTONE [Suspect]
     Indication: ABORTION INDUCED
     Route: 048
     Dates: start: 20140116
  2. MISOPROSTOL [Suspect]
     Route: 002
     Dates: start: 20140117, end: 20140125
  3. AZITHROMYCIN [Concomitant]

REACTIONS (2)
  - Haemorrhage [None]
  - Syncope [None]
